FAERS Safety Report 4749268-2 (Version None)
Quarter: 2005Q3

REPORT INFORMATION
  Report Type: 
  Country: None (occurrence: None)
  Receive Date: 20050812
  Receipt Date: 20050503
  Transmission Date: 20060218
  Serious: Yes (Other)
  Sender: FDA-Public Use
  Company Number: 403940

PATIENT
  Age: 51 Year
  Sex: Female
  Weight: 95.7 kg

DRUGS (2)
  1. PEGASYS [Suspect]
     Indication: HEPATITIS C VIRUS
     Dosage: 180 MCG/ML 1 PER WEEK SUBCUTANEOUS
     Route: 058
     Dates: start: 20050308, end: 20050525
  2. COPEGUS [Suspect]
     Indication: HEPATITIS C VIRUS
     Dosage: 200 MG 3 PER DAY ORAL
     Route: 048
     Dates: start: 20050308, end: 20050525

REACTIONS (3)
  - NO THERAPEUTIC RESPONSE [None]
  - URTICARIA [None]
  - WHITE BLOOD CELL COUNT DECREASED [None]
